FAERS Safety Report 10246636 (Version 1)
Quarter: 2014Q1

REPORT INFORMATION
  Report Type: Spontaneous
  Country: US (occurrence: None)
  Receive Date: 20140306
  Receipt Date: 20140306
  Transmission Date: 20141002
  Serious: Yes (Other)
  Sender: FDA-Public Use
  Company Number: 163-21880-13082936

PATIENT
  Age: 85 Year
  Sex: Female
  Weight: 72.58 kg

DRUGS (9)
  1. REVLIMID (LENALIDOMIDE) (25 MILLIGRAM, CAPSULES) [Suspect]
     Indication: PLASMA CELL MYELOMA
     Route: 048
     Dates: start: 201303
  2. ARICEPT (DONEPEZIL HYDROCHLORIDE) (TABLETS) [Concomitant]
  3. ASPIRINE (ACETYLSALICYLIC ACID) (TABLETS) [Concomitant]
  4. CALCIUM CARBONATE (TABLETS) [Concomitant]
  5. DITROPAN XL (OXYBUTYNIN HYDROCHLORIDE) (TABLETS) [Concomitant]
  6. LASIX (FUROSEMIDE) (TABLETS) [Concomitant]
  7. METOPROLOL (TABLETS) [Concomitant]
  8. SIMVASTATIN (TABLETS) [Concomitant]
  9. OMEPRAZOLE (CAPSULES) [Concomitant]

REACTIONS (3)
  - Neutropenia [None]
  - Impaired healing [None]
  - Full blood count decreased [None]
